FAERS Safety Report 7037325-X (Version None)
Quarter: 2010Q4

REPORT INFORMATION
  Report Type: 
  Country: None (occurrence: None)
  Receive Date: 20101011
  Receipt Date: 20100928
  Transmission Date: 20110411
  Serious: Yes (Hospitalization)
  Sender: FDA-Public Use
  Company Number: FR-SANOFI-AVENTIS-2010SA058025

PATIENT
  Age: 54 Year
  Sex: Female

DRUGS (13)
  1. TOPALGIC [Suspect]
     Indication: PRODUCT USED FOR UNKNOWN INDICATION
     Route: 042
     Dates: start: 20100603, end: 20100608
  2. TOPALGIC [Suspect]
     Route: 042
     Dates: start: 20100610, end: 20100611
  3. LOVENOX [Suspect]
     Indication: PRODUCT USED FOR UNKNOWN INDICATION
     Route: 058
     Dates: start: 20100603, end: 20100620
  4. FLAGYL [Suspect]
     Indication: PRODUCT USED FOR UNKNOWN INDICATION
     Route: 042
     Dates: start: 20100605, end: 20100616
  5. PROFENID [Suspect]
     Indication: PRODUCT USED FOR UNKNOWN INDICATION
     Dates: start: 20100602, end: 20100603
  6. ACUPAN [Suspect]
     Indication: PRODUCT USED FOR UNKNOWN INDICATION
     Route: 042
     Dates: start: 20100602, end: 20100603
  7. INIPOMP [Suspect]
     Indication: DUODENAL ULCER
     Route: 042
     Dates: start: 20100602, end: 20100606
  8. PERFALGAN [Suspect]
     Indication: PRODUCT USED FOR UNKNOWN INDICATION
     Dosage: DOSE:10 MILLIGRAM(S)/MILLILITRE
     Route: 042
     Dates: start: 20100602, end: 20100612
  9. SPASFON [Suspect]
     Indication: PRODUCT USED FOR UNKNOWN INDICATION
     Dates: start: 20100603, end: 20100620
  10. ROCEPHIN [Suspect]
     Dates: start: 20100605, end: 20100616
  11. ESOMEPRAZOLE [Suspect]
     Route: 048
     Dates: start: 20100606, end: 20100623
  12. ACETAMINOPHEN [Suspect]
     Route: 048
     Dates: start: 20100612, end: 20100621
  13. XANAX [Suspect]
     Route: 048
     Dates: start: 20100612, end: 20100613

REACTIONS (1)
  - TOXIC EPIDERMAL NECROLYSIS [None]
